FAERS Safety Report 21871710 (Version 5)
Quarter: 2023Q2

REPORT INFORMATION
  Report Type: Report from Study
  Country: JP (occurrence: JP)
  Receive Date: 20230117
  Receipt Date: 20230518
  Transmission Date: 20230722
  Serious: Yes (Hospitalization, Disabling, Other)
  Sender: FDA-Public Use
  Company Number: JP-JNJFOC-20220626099

PATIENT
  Age: 76 Year
  Sex: Male
  Weight: 58.9 kg

DRUGS (33)
  1. DARATUMUMAB [Suspect]
     Active Substance: DARATUMUMAB
     Indication: Plasma cell myeloma
     Route: 058
     Dates: start: 20211112, end: 20211112
  2. DARATUMUMAB [Suspect]
     Active Substance: DARATUMUMAB
     Route: 058
     Dates: start: 20211203, end: 20211203
  3. DARATUMUMAB [Suspect]
     Active Substance: DARATUMUMAB
     Route: 058
     Dates: start: 20211217, end: 20211217
  4. DARATUMUMAB [Suspect]
     Active Substance: DARATUMUMAB
     Route: 058
     Dates: start: 20220117, end: 20220117
  5. DARATUMUMAB [Suspect]
     Active Substance: DARATUMUMAB
     Route: 058
     Dates: start: 20220121, end: 20220121
  6. DARATUMUMAB [Suspect]
     Active Substance: DARATUMUMAB
     Route: 058
     Dates: start: 20220204, end: 20220204
  7. DARATUMUMAB [Suspect]
     Active Substance: DARATUMUMAB
     Route: 058
     Dates: start: 20220218, end: 20220218
  8. DARATUMUMAB [Suspect]
     Active Substance: DARATUMUMAB
     Route: 058
     Dates: start: 20220304, end: 20220304
  9. DARATUMUMAB [Suspect]
     Active Substance: DARATUMUMAB
     Route: 058
     Dates: start: 20220318, end: 20220318
  10. DARATUMUMAB [Suspect]
     Active Substance: DARATUMUMAB
     Route: 058
     Dates: start: 20220401, end: 20220401
  11. DARATUMUMAB [Suspect]
     Active Substance: DARATUMUMAB
     Route: 058
     Dates: start: 20220415, end: 20220415
  12. DARATUMUMAB [Suspect]
     Active Substance: DARATUMUMAB
     Route: 058
     Dates: start: 20220426, end: 20220426
  13. DARATUMUMAB [Suspect]
     Active Substance: DARATUMUMAB
     Route: 058
     Dates: start: 20220510, end: 20220510
  14. DARATUMUMAB [Suspect]
     Active Substance: DARATUMUMAB
     Route: 058
     Dates: start: 20220524, end: 20220524
  15. DARATUMUMAB [Suspect]
     Active Substance: DARATUMUMAB
     Route: 058
     Dates: start: 20220607, end: 20220607
  16. DARATUMUMAB [Suspect]
     Active Substance: DARATUMUMAB
     Route: 058
     Dates: start: 20220621, end: 20220621
  17. DARATUMUMAB [Suspect]
     Active Substance: DARATUMUMAB
     Route: 058
     Dates: start: 20220705, end: 20220705
  18. DARATUMUMAB [Suspect]
     Active Substance: DARATUMUMAB
     Route: 058
     Dates: start: 20220719, end: 20220719
  19. DARATUMUMAB [Suspect]
     Active Substance: DARATUMUMAB
     Route: 058
     Dates: start: 20220802, end: 20220802
  20. DARATUMUMAB [Suspect]
     Active Substance: DARATUMUMAB
     Route: 058
     Dates: start: 20221004, end: 20221004
  21. DARATUMUMAB [Suspect]
     Active Substance: DARATUMUMAB
     Route: 058
     Dates: start: 20221018, end: 20221018
  22. DARATUMUMAB [Suspect]
     Active Substance: DARATUMUMAB
     Route: 058
     Dates: start: 20221101, end: 20221101
  23. DARATUMUMAB [Suspect]
     Active Substance: DARATUMUMAB
     Route: 058
     Dates: start: 20221206, end: 20221206
  24. TELMISARTAN [Suspect]
     Active Substance: TELMISARTAN
     Indication: Product used for unknown indication
     Route: 048
     Dates: start: 20210726, end: 20220809
  25. AZOSEMIDE [Suspect]
     Active Substance: AZOSEMIDE
     Indication: Renal impairment
     Route: 048
     Dates: start: 20220315, end: 20220809
  26. AZOSEMIDE [Suspect]
     Active Substance: AZOSEMIDE
     Indication: Renal impairment
     Route: 048
     Dates: start: 20220816
  27. FUROSEMIDE [Suspect]
     Active Substance: FUROSEMIDE
     Indication: Product used for unknown indication
     Route: 048
     Dates: start: 20210218, end: 20220809
  28. CALONAL [Concomitant]
     Active Substance: ACETAMINOPHEN
     Indication: Infusion related reaction
     Route: 048
     Dates: start: 20211112
  29. FOSPHENYTOIN SODIUM [Concomitant]
     Active Substance: FOSPHENYTOIN SODIUM
     Indication: Epilepsy
     Route: 042
     Dates: start: 20220809, end: 20220809
  30. LEVETIRACETAM [Concomitant]
     Active Substance: LEVETIRACETAM
     Indication: Epilepsy
     Route: 048
     Dates: start: 20220811, end: 20220913
  31. AZOSEMIDE [Concomitant]
     Active Substance: AZOSEMIDE
     Indication: Renal impairment
     Route: 048
     Dates: start: 20220816
  32. AMPICILLIN SODIUM\SULBACTAM SODIUM [Concomitant]
     Active Substance: AMPICILLIN SODIUM\SULBACTAM SODIUM
     Indication: Pneumonia aspiration
     Route: 065
     Dates: start: 20221024, end: 20221031
  33. CARVEDILOL [Concomitant]
     Active Substance: CARVEDILOL
     Indication: Cardiac failure chronic
     Route: 048
     Dates: start: 20220830

REACTIONS (9)
  - Epilepsy [Recovering/Resolving]
  - Renal impairment [Recovering/Resolving]
  - Cardiac failure chronic [Recovering/Resolving]
  - Pneumonia aspiration [Recovering/Resolving]
  - Infusion related reaction [Recovered/Resolved]
  - Pyrexia [Recovered/Resolved]
  - Chills [Recovered/Resolved]
  - Inappropriate schedule of product administration [Unknown]
  - Off label use [Unknown]

NARRATIVE: CASE EVENT DATE: 20211112
